FAERS Safety Report 14457701 (Version 2)
Quarter: 2018Q2

REPORT INFORMATION
  Report Type: Spontaneous
  Country: GB (occurrence: GB)
  Receive Date: 20180130
  Receipt Date: 20180506
  Transmission Date: 20180711
  Serious: Yes (Other)
  Sender: FDA-Public Use
  Company Number: PHHY2017GB199528

PATIENT
  Age: 64 Year
  Sex: Female

DRUGS (5)
  1. METHOTREXATE. [Suspect]
     Active Substance: METHOTREXATE
     Indication: BREAST CANCER
     Dosage: 50 MG/M2, TIW
     Route: 042
  2. FOLINIC ACID [Concomitant]
     Active Substance: LEUCOVORIN
     Indication: BREAST CANCER
     Dosage: UNK
     Route: 048
  3. CYCLOPHOSPHAMIDE. [Suspect]
     Active Substance: CYCLOPHOSPHAMIDE
     Indication: BREAST CANCER
     Dosage: 750 MG/M2, TIW
     Route: 042
  4. FLUOROURACIL. [Suspect]
     Active Substance: FLUOROURACIL
     Indication: BREAST CANCER
     Dosage: 600 MG/M2, TIW
     Route: 042
  5. FOLINIC ACID [Concomitant]
     Active Substance: LEUCOVORIN
     Dosage: UNK, EVERY 3 WEEKS
     Route: 048

REACTIONS (9)
  - Pain [Recovered/Resolved]
  - Necrotising fasciitis [Recovered/Resolved]
  - Disease recurrence [Recovered/Resolved]
  - Erythema [Recovered/Resolved]
  - Scar pain [Recovered/Resolved]
  - Ulcer [Recovered/Resolved]
  - Discomfort [Recovered/Resolved]
  - Therapeutic response decreased [Unknown]
  - Inflammation [Recovered/Resolved]
